FAERS Safety Report 6581760-0 (Version None)
Quarter: 2010Q1

REPORT INFORMATION
  Report Type: 
  Country: None (occurrence: None)
  Receive Date: 20100215
  Receipt Date: 20100203
  Transmission Date: 20100710
  Serious: Yes (Other)
  Sender: FDA-Public Use
  Company Number: PHEH2010US02033

PATIENT
  Sex: Female

DRUGS (1)
  1. ZOMETA [Suspect]
     Dosage: UNK, UNK
     Dates: end: 20090601

REACTIONS (9)
  - DYSGEUSIA [None]
  - LUNG OPERATION [None]
  - METASTASES TO BONE [None]
  - MOUTH ULCERATION [None]
  - MUSCULOSKELETAL CHEST PAIN [None]
  - OSTEONECROSIS [None]
  - STOMATITIS [None]
  - TONSILLAR DISORDER [None]
  - TOOTH EROSION [None]
